FAERS Safety Report 19648097 (Version 1)
Quarter: 2021Q3

REPORT INFORMATION
  Report Type: Spontaneous
  Country: FR (occurrence: FR)
  Receive Date: 20210802
  Receipt Date: 20210802
  Transmission Date: 20211014
  Serious: Yes (Other)
  Sender: FDA-Public Use
  Company Number: FR-AUROBINDO-AUR-APL-2021-033330

PATIENT
  Age: 37 Year
  Sex: Female
  Weight: 98 kg

DRUGS (6)
  1. NOCTAMIDE [Suspect]
     Active Substance: LORMETAZEPAM
     Indication: PRODUCT USED FOR UNKNOWN INDICATION
     Dosage: 5 TO 10 CP AS A SINGLE DOSE
     Route: 048
     Dates: start: 20210522
  2. CHLORHYDRATE DE METOCLOPRAMIDE RENAUDIN [Suspect]
     Active Substance: METOCLOPRAMIDE HYDROCHLORIDE
     Indication: PRODUCT SUBSTITUTION
     Dosage: 110 MILLIGRAM, ONCE A DAY
     Route: 048
     Dates: start: 2005
  3. LOXAPAC [Suspect]
     Active Substance: LOXAPINE
     Indication: PRODUCT USED FOR UNKNOWN INDICATION
     Dosage: 150 GTT DROPS,1 TOTAL
     Route: 048
     Dates: start: 20210522, end: 20210522
  4. SERESTA [Suspect]
     Active Substance: OXAZEPAM
     Indication: PRODUCT USED FOR UNKNOWN INDICATION
     Dosage: 27 DOSAGE FORM,1 TOTAL
     Route: 048
     Dates: start: 20210522
  5. QUETIAPINE. [Suspect]
     Active Substance: QUETIAPINE
     Indication: PRODUCT USED FOR UNKNOWN INDICATION
     Dosage: UNK(UNKNOWN)
     Route: 065
     Dates: start: 202105
  6. ZOPICLONE [Suspect]
     Active Substance: ZOPICLONE
     Indication: PRODUCT USED FOR UNKNOWN INDICATION
     Dosage: UNK(INCONNUE)
     Route: 065
     Dates: start: 202105, end: 202105

REACTIONS (4)
  - Hypotension [Recovered/Resolved]
  - Drug abuse [Not Recovered/Not Resolved]
  - Somnolence [Recovered/Resolved]
  - Poisoning deliberate [Recovered/Resolved]

NARRATIVE: CASE EVENT DATE: 20210522
